FAERS Safety Report 6280164-8 (Version None)
Quarter: 2009Q3

REPORT INFORMATION
  Report Type: 
  Country: None (occurrence: None)
  Receive Date: 20090723
  Receipt Date: 20090716
  Transmission Date: 20100115
  Serious: Yes (Hospitalization)
  Sender: FDA-Public Use
  Company Number: GR-ABBOTT-09P-066-0585594-00

PATIENT
  Age: 55 Year
  Sex: Female
  Weight: 75 kg

DRUGS (5)
  1. HUMIRA [Suspect]
     Indication: RHEUMATOID ARTHRITIS
     Route: 050
     Dates: start: 20081201
  2. PREZOLON [Concomitant]
     Indication: RHEUMATOID ARTHRITIS
     Route: 048
     Dates: start: 20070401
  3. FILICINE [Concomitant]
     Indication: RHEUMATOID ARTHRITIS
     Route: 048
     Dates: start: 20080201
  4. IDEOS [Concomitant]
     Indication: OSTEOPOROSIS
     Route: 048
     Dates: start: 20070401
  5. CO-APROVEL [Concomitant]
     Indication: HYPERTENSION
     Route: 048
     Dates: start: 20070501

REACTIONS (3)
  - NODULE ON EXTREMITY [None]
  - PAIN [None]
  - SWELLING [None]
